FAERS Safety Report 7041919-5 (Version None)
Quarter: 2010Q4

REPORT INFORMATION
  Report Type: 
  Country: None (occurrence: None)
  Receive Date: 20101013
  Receipt Date: 20100429
  Transmission Date: 20110411
  Serious: No
  Sender: FDA-Public Use
  Company Number: US-ASTRAZENECA-2010SE19774

PATIENT
  Age: 83 Month
  Sex: Male
  Weight: 24.5 kg

DRUGS (4)
  1. SYMBICORT [Suspect]
     Indication: ASTHMA
     Dosage: 320 MCG PER DAY, 1 PUFF BID
     Route: 055
     Dates: start: 20100312, end: 20100421
  2. SYMBICORT [Suspect]
     Dosage: 640 MCG OER DAY, 2 PUFFS BID
     Route: 055
     Dates: start: 20100422, end: 20100429
  3. CONCERTA [Concomitant]
     Indication: ATTENTION DEFICIT/HYPERACTIVITY DISORDER
  4. SINGULAIR [Concomitant]

REACTIONS (4)
  - ABNORMAL BEHAVIOUR [None]
  - DISTURBANCE IN ATTENTION [None]
  - EMOTIONAL DISORDER [None]
  - LOGORRHOEA [None]
